FAERS Safety Report 7718991-X (Version None)
Quarter: 2011Q3

REPORT INFORMATION
  Report Type: 
  Country: None (occurrence: None)
  Receive Date: 20110830
  Receipt Date: 20110822
  Transmission Date: 20111222
  Serious: Yes (Other)
  Sender: FDA-Public Use
  Company Number: BR-GLAXOSMITHKLINE-A0942736A

PATIENT
  Sex: Male
  Weight: 70 kg

DRUGS (2)
  1. PANTOPRAZOLE SODIUM [Concomitant]
     Indication: PRODUCT USED FOR UNKNOWN INDICATION
     Dosage: 1TAB PER DAY
     Route: 065
     Dates: start: 20100101
  2. CEFUROXIME [Suspect]
     Indication: PRODUCT USED FOR UNKNOWN INDICATION
     Dosage: 250MG SINGLE DOSE
     Route: 065
     Dates: start: 20110821, end: 20110821

REACTIONS (7)
  - ABDOMINAL RIGIDITY [None]
  - FLATULENCE [None]
  - DRUG ADMINISTRATION ERROR [None]
  - PRODUCT QUALITY ISSUE [None]
  - FAECES DISCOLOURED [None]
  - RETCHING [None]
  - ERUCTATION [None]
